FAERS Safety Report 10289654 (Version 1)
Quarter: 2014Q3

REPORT INFORMATION
  Report Type: Spontaneous
  Country: US (occurrence: None)
  Receive Date: 20140707
  Receipt Date: 20140707
  Transmission Date: 20150326
  Serious: Yes (Other)
  Sender: FDA-Public Use
  Company Number: UNT-2014-002389

PATIENT
  Sex: Female

DRUGS (6)
  1. ADCIRCA [Concomitant]
     Active Substance: TADALAFIL
  2. REMODULIN [Suspect]
     Active Substance: TREPROSTINIL
     Indication: PULMONARY ARTERIAL HYPERTENSION
     Route: 058
     Dates: start: 20110419
  3. FUROSEMIDE (FUROSEMIDE) [Concomitant]
     Active Substance: FUROSEMIDE
  4. TRAMADOL (TRAMADOL) [Concomitant]
     Active Substance: TRAMADOL
  5. POTASSIUM (POTASSIUM) [Concomitant]
     Active Substance: POTASSIUM
  6. HEPARIN [Concomitant]
     Active Substance: HEPARIN SODIUM

REACTIONS (3)
  - Muscular weakness [None]
  - Neuralgia [None]
  - Myalgia [None]

NARRATIVE: CASE EVENT DATE: 20140604
